FAERS Safety Report 21704953 (Version 1)
Quarter: 2022Q4

REPORT INFORMATION
  Report Type: Spontaneous
  Country: US (occurrence: US)
  Receive Date: 20221209
  Receipt Date: 20221209
  Transmission Date: 20230113
  Serious: Yes (Hospitalization, Other)
  Sender: FDA-Public Use
  Company Number: US-CIPLA LTD.-2022US07050

PATIENT
  Age: 73 Year
  Sex: Female

DRUGS (1)
  1. HYDRALAZINE [Suspect]
     Active Substance: HYDRALAZINE HYDROCHLORIDE
     Indication: Hypertension
     Dosage: 50 MILLIGRAM, TID
     Route: 065

REACTIONS (4)
  - Anti-neutrophil cytoplasmic antibody positive vasculitis [Unknown]
  - Glomerulosclerosis [Unknown]
  - Glomerulonephritis rapidly progressive [Unknown]
  - Nephritic syndrome [Unknown]
